FAERS Safety Report 23189011 (Version 4)
Quarter: 2024Q4

REPORT INFORMATION
  Report Type: Spontaneous
  Country: JP (occurrence: JP)
  Receive Date: 20231115
  Receipt Date: 20241122
  Transmission Date: 20250115
  Serious: Yes (Death, Life-Threatening, Hospitalization, Other)
  Sender: TAKEDA
  Company Number: JP-TAKEDA-2023TJP015100

PATIENT
  Age: 9 Decade
  Sex: Female

DRUGS (2)
  1. ALUNBRIG [Suspect]
     Active Substance: BRIGATINIB
     Indication: Lung neoplasm malignant
     Dosage: UNK
  2. ALUNBRIG [Suspect]
     Active Substance: BRIGATINIB
     Dosage: 90 MILLIGRAM, QD
     Dates: start: 20221111, end: 202308

REACTIONS (5)
  - Lung neoplasm malignant [Fatal]
  - Lymphangiosis carcinomatosa [Fatal]
  - Pericardial effusion [Fatal]
  - Blood creatine phosphokinase increased [Unknown]
  - Stomatitis [Unknown]

NARRATIVE: CASE EVENT DATE: 20220601
